FAERS Safety Report 5355471-3 (Version None)
Quarter: 2007Q2

REPORT INFORMATION
  Report Type: 
  Country: None (occurrence: None)
  Receive Date: 20070611
  Receipt Date: 20070611
  Transmission Date: 20071010
  Serious: Yes (Hospitalization)
  Sender: FDA-Public Use
  Company Number: None

PATIENT
  Age: 14 Year
  Sex: Female
  Weight: 52.1637 kg

DRUGS (4)
  1. FLINTSTONES VITAMINS PLUS IMMUNITY SUPPORT 60 COUNT BAYER [Suspect]
     Indication: MEDICAL DIET
     Dosage: CHEW ^1^ PER DAY
     Route: 048
     Dates: start: 20070420, end: 20070514
  2. BUSPAR [Suspect]
     Indication: ANXIETY
     Dosage: SWALLOW 7 1/2 MG 3X DAY
     Route: 048
     Dates: start: 20070127, end: 20070509
  3. BUSPAR [Suspect]
     Indication: ATTENTION DEFICIT/HYPERACTIVITY DISORDER
     Dosage: SWALLOW 7 1/2 MG 3X DAY
     Route: 048
     Dates: start: 20070127, end: 20070509
  4. BUSPAR [Suspect]

REACTIONS (15)
  - ASTHENIA [None]
  - BODY TEMPERATURE INCREASED [None]
  - BONE PAIN [None]
  - DIARRHOEA [None]
  - FATIGUE [None]
  - HEART RATE INCREASED [None]
  - HYPERHIDROSIS [None]
  - MUSCULOSKELETAL STIFFNESS [None]
  - MYALGIA [None]
  - NASOPHARYNGITIS [None]
  - NAUSEA [None]
  - PALLOR [None]
  - PARAESTHESIA [None]
  - PHARYNGOLARYNGEAL PAIN [None]
  - VOMITING [None]
